FAERS Safety Report 11223092 (Version 6)
Quarter: 2016Q2

REPORT INFORMATION
  Report Type: Spontaneous
  Country: NO (occurrence: NO)
  Receive Date: 20150626
  Receipt Date: 20160606
  Transmission Date: 20160815
  Serious: Yes (Hospitalization, Other)
  Sender: FDA-Public Use
  Company Number: NO-ABBVIE-15K-122-1406184-00

PATIENT
  Age: 19 Year
  Sex: Male
  Weight: 78 kg

DRUGS (18)
  1. HUMIRA [Suspect]
     Active Substance: ADALIMUMAB
     Indication: CROHN^S DISEASE
     Dosage: FIRST DOSE
     Route: 058
     Dates: start: 20140808, end: 20140808
  2. IMUREL [Suspect]
     Active Substance: AZATHIOPRINE SODIUM
     Indication: PRODUCT USED FOR UNKNOWN INDICATION
     Route: 065
  3. PREDNISOLONE. [Suspect]
     Active Substance: PREDNISOLONE
     Indication: ENTERITIS
     Dosage: REDUCED BY 5 MG A WEEK
     Route: 065
     Dates: start: 20140721
  4. NOBLIGAN [Concomitant]
     Active Substance: TRAMADOL HYDROCHLORIDE
     Indication: ANALGESIC THERAPY
     Dosage: 1 TAB WHEN NEEDED, MAX 3 TIMES PER DAY
  5. REMSIMA [Suspect]
     Active Substance: INFLIXIMAB
     Indication: CROHN^S DISEASE
     Dosage: RECEIVED 3 DOSES
     Route: 042
     Dates: start: 20141106, end: 20141106
  6. REMSIMA [Suspect]
     Active Substance: INFLIXIMAB
     Dosage: 65ML/H, INCREASE TO 100ML/H AND 125 ML/H
     Route: 042
     Dates: start: 20141216, end: 20141216
  7. PARACETAMOL [Concomitant]
     Active Substance: ACETAMINOPHEN
     Indication: PAIN
     Dosage: USE 1 TAB, 2-3 TIMES DAILY FOR A WEEK, THEN UPON NEED
  8. REMSIMA [Suspect]
     Active Substance: INFLIXIMAB
     Route: 042
     Dates: start: 20141118, end: 20141118
  9. PREDNISOLONE. [Suspect]
     Active Substance: PREDNISOLONE
     Indication: CROHN^S DISEASE
     Route: 065
  10. PARACETAMOL [Concomitant]
     Active Substance: ACETAMINOPHEN
     Indication: ABDOMINAL PAIN
  11. ZANTAC [Concomitant]
     Active Substance: RANITIDINE HYDROCHLORIDE
     Indication: PRODUCT USED FOR UNKNOWN INDICATION
  12. HUMIRA [Suspect]
     Active Substance: ADALIMUMAB
     Dosage: SECOND DOSE
     Route: 058
     Dates: start: 20140822, end: 20140822
  13. HUMIRA [Suspect]
     Active Substance: ADALIMUMAB
     Dosage: 4TH DOSE
     Route: 058
     Dates: start: 20140918, end: 20141001
  14. MESALAZINE [Suspect]
     Active Substance: MESALAMINE
     Indication: CROHN^S DISEASE
     Route: 065
  15. IMODIUM [Concomitant]
     Active Substance: LOPERAMIDE HYDROCHLORIDE
     Indication: DIARRHOEA
     Dosage: MORNING
  16. PREDNISOLONE. [Suspect]
     Active Substance: PREDNISOLONE
     Dosage: REDUCED BY 5 MG A WEEK UNTIL DISCONTINUED
     Route: 065
  17. PENTASA [Concomitant]
     Active Substance: MESALAMINE
     Indication: PRODUCT USED FOR UNKNOWN INDICATION
  18. ZYRTEC [Concomitant]
     Active Substance: CETIRIZINE HYDROCHLORIDE
     Indication: PRODUCT USED FOR UNKNOWN INDICATION

REACTIONS (42)
  - Headache [Not Recovered/Not Resolved]
  - General physical health deterioration [Unknown]
  - Ascites [Unknown]
  - Dizziness [Unknown]
  - Decreased appetite [Unknown]
  - Anorectal discomfort [Unknown]
  - Hyperhidrosis [Unknown]
  - Body temperature increased [Unknown]
  - Vomiting [Recovered/Resolved]
  - Crohn^s disease [Unknown]
  - Arthralgia [Unknown]
  - Nausea [Unknown]
  - Scar [Unknown]
  - Tooth discolouration [Unknown]
  - Anorectal discomfort [Unknown]
  - Depression [Unknown]
  - Malaise [Unknown]
  - Pancreatitis chronic [Not Recovered/Not Resolved]
  - Haematochezia [Unknown]
  - Sensation of foreign body [Unknown]
  - Eye pain [Unknown]
  - Pain [Unknown]
  - Pancreatitis acute [Recovered/Resolved with Sequelae]
  - Proctalgia [Unknown]
  - Dyspnoea [Unknown]
  - Presyncope [Unknown]
  - Insomnia [Unknown]
  - Blood calcium increased [Unknown]
  - Clostridium difficile infection [Unknown]
  - Gastrooesophageal reflux disease [Unknown]
  - Depression [Unknown]
  - Hyperhidrosis [Unknown]
  - Colitis [Unknown]
  - Cold sweat [Unknown]
  - Drug effect incomplete [Unknown]
  - Acne [Unknown]
  - Sinus arrhythmia [Unknown]
  - Cough [Unknown]
  - Dysphagia [Unknown]
  - Faeces discoloured [Unknown]
  - Hypoxia [Unknown]
  - Abdominal lymphadenopathy [Unknown]

NARRATIVE: CASE EVENT DATE: 201408
